FAERS Safety Report 11787372 (Version 1)
Quarter: 2015Q4

REPORT INFORMATION
  Report Type: Spontaneous
  Country: US (occurrence: US)
  Receive Date: 20151130
  Receipt Date: 20151130
  Transmission Date: 20160305
  Serious: Yes (Other)
  Sender: FDA-Public Use
  Company Number: US-TEVA-612392USA

PATIENT
  Sex: Female

DRUGS (14)
  1. ALLEGRA [Concomitant]
     Active Substance: FEXOFENADINE HYDROCHLORIDE
  2. NUCYNTA [Concomitant]
     Active Substance: TAPENTADOL HYDROCHLORIDE
  3. ADVIL [Concomitant]
     Active Substance: IBUPROFEN
  4. VITAMIN B COMPLEX [Concomitant]
     Active Substance: CYANOCOBALAMIN\DEXPANTHENOL\NIACINAMIDE\PYRIDOXINE HYDROCHLORIDE\RIBOFLAVIN 5^-PHOSPHATE SODIUM\THIAMINE HYDROCHLORIDE\VITAMIN B COMPLEX
  5. CLARINEX [Concomitant]
     Active Substance: DESLORATADINE
  6. MAGNESIUM [Concomitant]
     Active Substance: MAGNESIUM
  7. AZITHROMYCIN [Suspect]
     Active Substance: AZITHROMYCIN ANHYDROUS
     Indication: JUVENILE IDIOPATHIC ARTHRITIS
  8. CAFFEINE. [Concomitant]
     Active Substance: CAFFEINE
  9. BILBERRY [Concomitant]
     Active Substance: BILBERRY
  10. CRANBERRY. [Concomitant]
     Active Substance: CRANBERRY
  11. BUPRENORPHINE. [Concomitant]
     Active Substance: BUPRENORPHINE
  12. GINSENG [Concomitant]
     Active Substance: ASIAN GINSENG
  13. VITAMIN D3 [Concomitant]
     Active Substance: CHOLECALCIFEROL
  14. CALCIUM W/MAGNESIUM [Concomitant]
     Active Substance: CALCIUM\MAGNESIUM

REACTIONS (3)
  - Juvenile idiopathic arthritis [Unknown]
  - Fatigue [Unknown]
  - Product use issue [Unknown]
